FAERS Safety Report 9228187 (Version 1)
Quarter: 2013Q2

REPORT INFORMATION
  Report Type: Report from Study
  Country: CA (occurrence: CA)
  Receive Date: 20130412
  Receipt Date: 20130412
  Transmission Date: 20140414
  Serious: Yes (Death, Other)
  Sender: FDA-Public Use
  Company Number: CA-ROCHE-1209988

PATIENT
  Sex: 0

DRUGS (4)
  1. TENECTEPLASE [Suspect]
     Indication: ACUTE MYOCARDIAL INFARCTION
     Dosage: WEIGHT-ADJUSTED
     Route: 065
  2. ASPIRIN [Suspect]
     Indication: ACUTE MYOCARDIAL INFARCTION
     Route: 048
  3. ASPIRIN [Suspect]
     Route: 065
  4. UNFRACTIONATED HEPARIN [Suspect]
     Indication: ACUTE MYOCARDIAL INFARCTION
     Dosage: WEIGHT-ADJUSTED
     Route: 065

REACTIONS (8)
  - Death [Fatal]
  - Haemorrhage [Unknown]
  - Myocardial infarction [Unknown]
  - Myocardial ischaemia [Unknown]
  - Cardiac failure congestive [Unknown]
  - Cardiogenic shock [Unknown]
  - Ventricular tachycardia [Unknown]
  - Drug ineffective [Unknown]
